FAERS Safety Report 21619888 (Version 5)
Quarter: 2023Q1

REPORT INFORMATION
  Report Type: Report from Study
  Country: US (occurrence: None)
  Receive Date: 20221121
  Receipt Date: 20230303
  Transmission Date: 20230418
  Serious: Yes (Other)
  Sender: FDA-Public Use
  Company Number: US-ROCHE-3208370

PATIENT
  Age: 62 Year
  Sex: Male
  Weight: 91 kg

DRUGS (20)
  1. RANIBIZUMAB [Suspect]
     Active Substance: RANIBIZUMAB
     Indication: Diabetic retinal oedema
     Dosage: DOSE OF STUDY DRUG FIRST ADMINISTERED 10 MG/ML?START DATE OF MOST RECENT DOSE OF STUDY DRUG PRIOR TO
     Route: 050
     Dates: start: 20200128
  2. RANIBIZUMAB [Suspect]
     Active Substance: RANIBIZUMAB
  3. RANIBIZUMAB [Suspect]
     Active Substance: RANIBIZUMAB
  4. RANIBIZUMAB [Suspect]
     Active Substance: RANIBIZUMAB
  5. RANIBIZUMAB [Suspect]
     Active Substance: RANIBIZUMAB
  6. RANIBIZUMAB [Concomitant]
     Active Substance: RANIBIZUMAB
     Dosage: DOSE OF STUDY DRUG FIRST ADMINISTERED 6 MG/ML?START DATE OF MOST RECENT DOSE OF STUDY DRUG PRIOR TO
     Route: 050
     Dates: start: 20200211
  7. ASPIRIN [Concomitant]
     Active Substance: ASPIRIN
     Dosage: UNIT DOSE: 81 MG/ML.
     Route: 048
     Dates: start: 20200625
  8. LASIX [Concomitant]
     Active Substance: FUROSEMIDE
     Indication: Peripheral swelling
     Dosage: UNIT DOSE: 40 MG/ML.
     Route: 048
     Dates: start: 202107
  9. LASIX [Concomitant]
     Active Substance: FUROSEMIDE
     Indication: Thrombosis
     Dosage: 80 MG/ML
     Route: 048
     Dates: start: 20221213
  10. METOPROLOL TARTRATE [Concomitant]
     Active Substance: METOPROLOL TARTRATE
     Indication: Hypertension
     Dosage: UNIT DOSE: 100 MG/ML.
     Route: 048
     Dates: start: 20220405
  11. FERROUS GLUCONATE [Concomitant]
     Active Substance: FERROUS GLUCONATE
     Dosage: UNIT DOSE: 324 MG/ML.
     Route: 048
     Dates: start: 20220405
  12. TAMSULOSIN HYDROCHLORIDE [Concomitant]
     Active Substance: TAMSULOSIN HYDROCHLORIDE
     Indication: Prostatomegaly
     Dosage: UNIT DOSE: 4 MG/ML.
     Route: 048
     Dates: start: 20220405
  13. SODIUM BICARBONATE [Concomitant]
     Active Substance: SODIUM BICARBONATE
     Indication: Acute kidney injury
     Dosage: UNIT DOSE: 325 MG/ML.
     Route: 048
     Dates: start: 20220712
  14. FINASTERIDE [Concomitant]
     Active Substance: FINASTERIDE
     Indication: Prostatomegaly
     Dosage: UNIT DOSE: 5 MG/ML.
     Route: 048
     Dates: start: 20220705
  15. AMLODIPINE [Concomitant]
     Active Substance: AMLODIPINE BESYLATE
     Indication: Hypertension
     Dosage: UNIT DOSE; 10 MG/ML.
     Route: 048
     Dates: start: 20220405
  16. SEVELAMER [Concomitant]
     Active Substance: SEVELAMER
     Indication: Blood phosphorus increased
     Dosage: 800 MG/ML
     Route: 048
     Dates: start: 20220901
  17. LUCENTIS [Concomitant]
     Active Substance: RANIBIZUMAB
     Dosage: UNIT DOSE: 0.5 MG/ML. FORMULATION: LIQUID.
     Route: 050
     Dates: start: 20221101, end: 20221101
  18. LUCENTIS [Concomitant]
     Active Substance: RANIBIZUMAB
     Dosage: UNIT DOSE: 0.5 MG/ML.
     Route: 050
     Dates: start: 20230103, end: 20230103
  19. ELIQUIS [Concomitant]
     Active Substance: APIXABAN
     Indication: Thrombosis
     Dosage: 2.5 MG/ML
     Route: 048
     Dates: start: 20221213
  20. LOSARTAN POTASSIUM [Concomitant]
     Active Substance: LOSARTAN POTASSIUM
     Indication: Hypertension
     Dosage: 50 MG/ML
     Route: 048
     Dates: start: 20221213

REACTIONS (2)
  - Device issue [Unknown]
  - No adverse event [Unknown]

NARRATIVE: CASE EVENT DATE: 20221025
